FAERS Safety Report 8150108-2 (Version None)
Quarter: 2012Q1

REPORT INFORMATION
  Report Type: 
  Country: None (occurrence: None)
  Receive Date: 20120220
  Receipt Date: 20120210
  Transmission Date: 20120608
  Serious: Yes (Hospitalization, Other)
  Sender: FDA-Public Use
  Company Number: US-BIOGENIDEC-2012BI004022

PATIENT
  Age: 34 Year
  Sex: Female

DRUGS (12)
  1. HYDROCHLOROTHIAZIDE [Concomitant]
     Indication: HYPERTENSION
     Dosage: DOSE UNIT:25 UNKNOWN
  2. PERCOCET [Concomitant]
  3. CARVEDILOL [Concomitant]
     Indication: HEADACHE
     Dosage: DOSE UNIT:25 UNKNOWN
  4. EFFEXOR XR [Concomitant]
     Dosage: DOSE UNIT:125 UNKNOWN
  5. XANAX [Concomitant]
     Indication: ANXIETY
  6. ASPIRIN [Concomitant]
     Indication: PROPHYLAXIS
  7. NUVIGIL [Concomitant]
     Indication: FATIGUE
  8. IBUPROFEN [Concomitant]
  9. ACYCLOVIR [Concomitant]
     Indication: HERPES VIRUS INFECTION
  10. TYSABRI [Suspect]
     Indication: MULTIPLE SCLEROSIS
     Route: 042
     Dates: start: 20100701, end: 20120212
  11. MULTI-VITAMIN [Concomitant]
  12. AMBIEN [Concomitant]
     Indication: SLEEP DISORDER

REACTIONS (1)
  - MENINGITIS HERPES [None]
